FAERS Safety Report 16031805 (Version 2)
Quarter: 2019Q1

REPORT INFORMATION
  Report Type: Report from Study
  Country: VN (occurrence: VN)
  Receive Date: 20190304
  Receipt Date: 20190321
  Transmission Date: 20190418
  Serious: Yes (Other)
  Sender: FDA-Public Use
  Company Number: VN-ASTELLAS-2019US007664

PATIENT
  Sex: Female

DRUGS (2)
  1. ERLOTINIB [Suspect]
     Active Substance: ERLOTINIB
     Route: 048
     Dates: start: 20190221
  2. ERLOTINIB [Suspect]
     Active Substance: ERLOTINIB
     Indication: LUNG NEOPLASM MALIGNANT
     Route: 048
     Dates: start: 2017, end: 20190221

REACTIONS (6)
  - Rash pustular [Recovering/Resolving]
  - Epistaxis [Recovered/Resolved]
  - Nasal ulcer [Recovered/Resolved]
  - Stomatitis [Recovered/Resolved]
  - Paronychia [Not Recovered/Not Resolved]
  - Seborrhoeic dermatitis [Recovering/Resolving]
